FAERS Safety Report 16381457 (Version 2)
Quarter: 2019Q3

REPORT INFORMATION
  Report Type: Spontaneous
  Country: GR (occurrence: GR)
  Receive Date: 20190603
  Receipt Date: 20190918
  Transmission Date: 20191004
  Serious: Yes (Other)
  Sender: FDA-Public Use
  Company Number: GR-TEVA-2019-GR-1056784

PATIENT
  Age: 18 Year
  Sex: Female
  Weight: 120 kg

DRUGS (2)
  1. METHOTREXATE. [Suspect]
     Active Substance: METHOTREXATE
     Indication: ACUTE LYMPHOCYTIC LEUKAEMIA
     Dosage: 10 GRAM DAILY; DOSE OF 5G/M2 (10G IN TOTAL ACCORDING TO IDEAL BODY SURFACE) ACCORDING TO THE BFM PRO
     Route: 042
  2. METHOTREXATE. [Suspect]
     Active Substance: METHOTREXATE
     Dosage: PATIENT RECEIVED INCREASING DOSES OF METHOTREXATE 0.5 G/M2, 1.5 G/M2 AND 2.5 G/M2
     Route: 042

REACTIONS (13)
  - Diarrhoea [Unknown]
  - Rash vesicular [Recovered/Resolved]
  - Nephropathy toxic [Recovered/Resolved]
  - Vomiting [Recovered/Resolved]
  - Rash [Recovered/Resolved]
  - Mucosal erosion [Unknown]
  - Somnolence [Unknown]
  - Anuria [Recovered/Resolved]
  - Leukopenia [Recovered/Resolved]
  - Hepatic enzyme abnormal [Unknown]
  - Acute kidney injury [Recovered/Resolved]
  - Thrombocytopenia [Unknown]
  - Ileus paralytic [Recovered/Resolved]
